FAERS Safety Report 7377410-6 (Version None)
Quarter: 2011Q1

REPORT INFORMATION
  Report Type: 
  Country: None (occurrence: None)
  Receive Date: 20110328
  Receipt Date: 20110317
  Transmission Date: 20110831
  Serious: Yes (Hospitalization, Other)
  Sender: FDA-Public Use
  Company Number: JP-JNJFOC-20110308500

PATIENT
  Age: 57 Year
  Sex: Male

DRUGS (6)
  1. FOSFLUCONAZOLE [Suspect]
     Indication: PNEUMONIA CRYPTOCOCCAL
     Route: 065
  2. PIOGLITAZONE HCL [Concomitant]
     Route: 048
  3. GLIMEPIRIDE [Concomitant]
     Route: 048
  4. METFORMIN HYDROCHLORIDE [Concomitant]
     Route: 048
  5. VALSARTAN [Concomitant]
     Route: 048
  6. ITRIZOLE [Suspect]
     Indication: PNEUMONIA CRYPTOCOCCAL
     Route: 048

REACTIONS (3)
  - PLEURAL EFFUSION [None]
  - DRUG INEFFECTIVE [None]
  - GASTROINTESTINAL DISORDER [None]
